FAERS Safety Report 9227054 (Version 1)
Quarter: 2013Q2

REPORT INFORMATION
  Report Type: Spontaneous
  Country: US (occurrence: None)
  Receive Date: 20130410
  Receipt Date: 20130410
  Transmission Date: 20140414
  Serious: Yes (Life-Threatening)
  Sender: FDA-Public Use
  Company Number: None

PATIENT
  Age: 77 Year
  Sex: Female
  Weight: 74.5 kg

DRUGS (1)
  1. DABIGATRAN 150 MG BOEHRINGER [Suspect]
     Indication: ATRIAL FIBRILLATION
     Dosage: DABIGATRAN 150MG BID PO?}3 MONTHS
     Route: 048

REACTIONS (2)
  - Mental status changes [None]
  - Subdural haematoma [None]
